FAERS Safety Report 8898596 (Version 2)
Quarter: 2012Q4

REPORT INFORMATION
  Report Type: 
  Country: US (occurrence: US)
  Receive Date: 20121109
  Receipt Date: 20121226
  Transmission Date: 20130627
  Serious: Yes (Death, Hospitalization)
  Sender: FDA-Public Use
  Company Number: US-AMGEN-USASP2012070839

PATIENT
  Age: 92 Year
  Sex: Female

DRUGS (1)
  1. PROLIA [Suspect]
     Indication: PRODUCT USED FOR UNKNOWN INDICATION
     Dosage: UNK UNK, one time dose
     Dates: start: 20120302, end: 20120302

REACTIONS (15)
  - Death [Fatal]
  - Urinary tract infection [Unknown]
  - Hypertension [Unknown]
  - Nausea [Unknown]
  - Abdominal pain [Unknown]
  - Bronchitis [Unknown]
  - Communication disorder [Unknown]
  - Choking sensation [Unknown]
  - Aphagia [Unknown]
  - Vomiting [Unknown]
  - Weight decreased [Unknown]
  - Pyrexia [Unknown]
  - Asthenia [Unknown]
  - Device occlusion [Unknown]
  - Gastrointestinal tube insertion [Unknown]
